FAERS Safety Report 19018479 (Version 1)
Quarter: 2021Q1

REPORT INFORMATION
  Report Type: Spontaneous
  Country: US (occurrence: US)
  Receive Date: 20210317
  Receipt Date: 20210317
  Transmission Date: 20210420
  Serious: Yes (Disabling)
  Sender: FDA-Public Use
  Company Number: None

PATIENT
  Age: 29 Year
  Sex: Male
  Weight: 65.25 kg

DRUGS (1)
  1. LEVOFLOXACIN. [Suspect]
     Active Substance: LEVOFLOXACIN
     Route: 048
     Dates: start: 20200901, end: 20200907

REACTIONS (9)
  - Tinnitus [None]
  - Depression [None]
  - Impaired quality of life [None]
  - Anxiety [None]
  - Pain in extremity [None]
  - Neuropathy peripheral [None]
  - Insomnia [None]
  - Product communication issue [None]
  - Tendonitis [None]
